FAERS Safety Report 8870745 (Version 1)
Quarter: 2012Q4

REPORT INFORMATION
  Report Type: 
  Country: US (occurrence: US)
  Receive Date: 20121023
  Receipt Date: 20121023
  Transmission Date: 20130627
  Serious: No
  Sender: FDA-Public Use
  Company Number: US-AMGEN-USASP2011069475

PATIENT
  Age: 47 Year
  Sex: Male
  Weight: 99.77 kg

DRUGS (3)
  1. ENBREL [Suspect]
     Indication: PSORIATIC ARTHROPATHY
     Dosage: 25 mg, 2 times/wk
     Route: 058
  2. ADVIL /00109201/ [Concomitant]
     Dosage: 200 mg, UNK
     Route: 048
  3. MULTIVITAMIN                       /00097801/ [Concomitant]
     Route: 048

REACTIONS (1)
  - Pneumonia [Recovered/Resolved]
